FAERS Safety Report 19297473 (Version 1)
Quarter: 2021Q2

REPORT INFORMATION
  Report Type: Report from Study
  Country: None (occurrence: IN)
  Receive Date: 20210524
  Receipt Date: 20210524
  Transmission Date: 20210717
  Serious: Yes (Other)
  Sender: FDA-Public Use
  Company Number: IN-ABBVIE-21P-078-3916188-00

PATIENT

DRUGS (1)
  1. SODIUM VALPROATE [Suspect]
     Active Substance: VALPROATE SODIUM
     Indication: PRODUCT USED FOR UNKNOWN INDICATION
     Route: 065

REACTIONS (9)
  - Teratogenicity [Unknown]
  - Liver disorder [Unknown]
  - Polycystic ovaries [Unknown]
  - Intentional product use issue [Unknown]
  - Hepatic enzyme increased [Unknown]
  - Weight increased [Unknown]
  - Obesity [Unknown]
  - Menstrual disorder [Unknown]
  - Alopecia [Unknown]
